FAERS Safety Report 15744549 (Version 1)
Quarter: 2018Q4

REPORT INFORMATION
  Report Type: Spontaneous
  Country: US (occurrence: US)
  Receive Date: 20181220
  Receipt Date: 20181220
  Transmission Date: 20190205
  Serious: Yes (Other)
  Sender: FDA-Public Use
  Company Number: US-MALLINCKRODT-T201800403

PATIENT
  Age: 81 Year
  Sex: Female

DRUGS (4)
  1. OXYCODONE/APAP [Suspect]
     Active Substance: ACETAMINOPHEN\OXYCODONE HYDROCHLORIDE
     Indication: ARTHRITIS
     Dosage: 10/325 MG
     Route: 048
     Dates: end: 20180127
  2. FENTANYL TRANSDERMAL SYSTEM [Suspect]
     Active Substance: FENTANYL
     Indication: ARTHRITIS
     Dosage: 50 MCG/ HOUR, EVERY 3 DAYS
     Route: 065
  3. FENTANYL TRANSDERMAL SYSTEM [Suspect]
     Active Substance: FENTANYL
     Dosage: 25 MCG/ HOUR, EVERY 3 DAYS
     Route: 065
  4. GABAPENTIN. [Concomitant]
     Active Substance: GABAPENTIN
     Indication: PRODUCT USED FOR UNKNOWN INDICATION

REACTIONS (13)
  - Back pain [Unknown]
  - Chest pain [Recovering/Resolving]
  - Drug dependence [Unknown]
  - Neuralgia [Unknown]
  - Diarrhoea [Unknown]
  - Decreased activity [Unknown]
  - Muscular weakness [Unknown]
  - Abdominal pain upper [Unknown]
  - Herpes zoster [Recovering/Resolving]
  - Malaise [Unknown]
  - Feeling abnormal [Unknown]
  - Weight decreased [Unknown]
  - Pain in extremity [Recovering/Resolving]
